FAERS Safety Report 17212768 (Version 1)
Quarter: 2019Q4

REPORT INFORMATION
  Report Type: Spontaneous
  Country: US (occurrence: US)
  Receive Date: 20191230
  Receipt Date: 20191230
  Transmission Date: 20200122
  Serious: No
  Sender: FDA-Public Use
  Company Number: US-JNJFOC-20191243647

PATIENT
  Age: 63 Year
  Sex: Male
  Weight: 95.34 kg

DRUGS (1)
  1. MENS ROGAINE EXTRA STRENGTH [Suspect]
     Active Substance: MINOXIDIL
     Indication: ALOPECIA
     Dosage: A CUP MAYBE
     Route: 061
     Dates: start: 20190903, end: 20191006

REACTIONS (5)
  - Application site pain [Recovered/Resolved]
  - Incorrect dose administered [Unknown]
  - Lice infestation [Recovered/Resolved]
  - Inappropriate schedule of product administration [Unknown]
  - Application site pruritus [Recovered/Resolved]

NARRATIVE: CASE EVENT DATE: 20190903
